FAERS Safety Report 6235823-X (Version None)
Quarter: 2009Q2

REPORT INFORMATION
  Report Type: 
  Country: None (occurrence: None)
  Receive Date: 20090617
  Receipt Date: 20090617
  Transmission Date: 20091009
  Serious: No
  Sender: FDA-Public Use
  Company Number: None

PATIENT
  Age: 65 Year
  Sex: Female
  Weight: 69.4003 kg

DRUGS (1)
  1. ZICAM GEL SWABS OVER THE COUNTER MATRIXX CORP - DON'T RECALL - [Suspect]
     Indication: NASOPHARYNGITIS
     Dosage: DON'T RECALL 3-5 X'S /DAY NASAL
     Route: 045
     Dates: start: 20080629, end: 20080702

REACTIONS (3)
  - AGEUSIA [None]
  - ANOSMIA [None]
  - URINARY TRACT INFECTION [None]
